FAERS Safety Report 23135263 (Version 1)
Quarter: 2023Q4

REPORT INFORMATION
  Report Type: Report from Study
  Country: CO (occurrence: CO)
  Receive Date: 20231101
  Receipt Date: 20231101
  Transmission Date: 20240110
  Serious: Yes (Hospitalization)
  Sender: FDA-Public Use
  Company Number: CO-Eisai Medical Research-EC-2023-132681

PATIENT
  Age: 59 Year
  Sex: Male
  Weight: 100 kg

DRUGS (10)
  1. LENVATINIB [Suspect]
     Active Substance: LENVATINIB
     Indication: Clear cell renal cell carcinoma
     Dosage: FLUCTUATED DOSE, STARTING WITH 20MG
     Route: 048
     Dates: start: 20220830, end: 20230110
  2. LENVATINIB [Suspect]
     Active Substance: LENVATINIB
     Route: 048
     Dates: start: 20230301
  3. PEMBROLIZUMAB [Suspect]
     Active Substance: PEMBROLIZUMAB
     Indication: Clear cell renal cell carcinoma
     Route: 041
     Dates: start: 20220830, end: 20221130
  4. BELZUTIFAN [Suspect]
     Active Substance: BELZUTIFAN
     Indication: Clear cell renal cell carcinoma
     Dosage: STARTING AT DOSE 120MG, FLUCTUATED DOSAGE
     Route: 048
     Dates: start: 20220830, end: 20230110
  5. BELZUTIFAN [Suspect]
     Active Substance: BELZUTIFAN
     Dosage: STARTING DOSE 80MG, FLUCTUATED DOSAGE
     Route: 048
     Dates: start: 20230301
  6. LOSARTAN [Concomitant]
     Active Substance: LOSARTAN
     Dates: start: 200201
  7. METFORMIN [Concomitant]
     Active Substance: METFORMIN HYDROCHLORIDE
     Dates: start: 202001
  8. ALPRAZOLAM [Concomitant]
     Active Substance: ALPRAZOLAM
     Dates: start: 202101, end: 20230824
  9. RISPERIDONE [Concomitant]
     Active Substance: RISPERIDONE
     Dates: start: 202101, end: 20230824
  10. ATORVASTATIN [Concomitant]
     Active Substance: ATORVASTATIN
     Dates: start: 202101

REACTIONS (1)
  - Hepatotoxicity [Recovered/Resolved]

NARRATIVE: CASE EVENT DATE: 20230118
